FAERS Safety Report 9129996 (Version 3)
Quarter: 2013Q1

REPORT INFORMATION
  Report Type: Spontaneous
  Country: US (occurrence: US)
  Receive Date: 20130228
  Receipt Date: 20130329
  Transmission Date: 20140127
  Serious: Yes (Other)
  Sender: FDA-Public Use
  Company Number: US-ABBOTT-13P-163-1053922-00

PATIENT
  Sex: Male
  Weight: 90.8 kg

DRUGS (3)
  1. ANDROGEL [Suspect]
     Indication: BLOOD TESTOSTERONE DECREASED
     Dosage: PUMP 88G TRANSDERMAL GEL; 2 PUMPS
     Dates: start: 201206
  2. ALEVE [Concomitant]
     Indication: MUSCULOSKELETAL PAIN
  3. ALBUTEROL INHALER [Concomitant]
     Indication: ASTHMA

REACTIONS (7)
  - Joint injury [Recovered/Resolved]
  - Asthenia [Recovered/Resolved]
  - Malaise [Recovered/Resolved]
  - Drug ineffective [Recovering/Resolving]
  - Blood testosterone decreased [Recovered/Resolved]
  - Depressed mood [Recovered/Resolved]
  - Product quality issue [Recovered/Resolved]
